FAERS Safety Report 9925044 (Version 1)
Quarter: 2014Q1

REPORT INFORMATION
  Report Type: Spontaneous
  Country: US (occurrence: None)
  Receive Date: 20140225
  Receipt Date: 20140225
  Transmission Date: 20141002
  Serious: Yes (Other)
  Sender: FDA-Public Use
  Company Number: None

PATIENT
  Age: 81 Year
  Sex: Female
  Weight: 59.88 kg

DRUGS (13)
  1. POTASSIUM CL [Suspect]
     Indication: MUSCLE SPASMS
     Dosage: 2 CAPS ONCE DAILY (WITH FOOD) BY MOUTH ( 1 TAKE IT WITH BREAKSAST)(INCLUDING HOT COFFEE)
     Route: 048
     Dates: start: 20130908
  2. OMEPRAZOLE [Concomitant]
  3. DIPHENOXYLATE/ATROPINE [Concomitant]
  4. FUROSEMIDE [Concomitant]
  5. GLUCOSAMINE [Concomitant]
  6. MULTIVITAMIN [Concomitant]
  7. B-COMPLEX [Concomitant]
  8. FISH OIL [Concomitant]
  9. CALCIUM [Concomitant]
  10. VITAMIN D [Concomitant]
  11. VITAMIN C [Concomitant]
  12. BIOTIN [Concomitant]
  13. CINNAMON [Concomitant]

REACTIONS (3)
  - Product quality issue [None]
  - Throat irritation [None]
  - Amnesia [None]
